FAERS Safety Report 7192557-5 (Version None)
Quarter: 2010Q4

REPORT INFORMATION
  Report Type: 
  Country: None (occurrence: None)
  Receive Date: 20101223
  Receipt Date: 20101015
  Transmission Date: 20110411
  Serious: No
  Sender: FDA-Public Use
  Company Number: US-BAYER-201022564BCC

PATIENT
  Sex: Female
  Weight: 60 kg

DRUGS (5)
  1. ALEVE [Suspect]
     Indication: BACK PAIN
     Route: 048
  2. ALEVE [Concomitant]
     Route: 048
  3. ALEVE [Suspect]
     Route: 048
  4. NEXIUM [Concomitant]
  5. LEVOXYL [Concomitant]

REACTIONS (2)
  - DYSPEPSIA [None]
  - DYSPHAGIA [None]
